FAERS Safety Report 14660193 (Version 1)
Quarter: 2018Q1

REPORT INFORMATION
  Report Type: Spontaneous
  Country: FR (occurrence: FR)
  Receive Date: 20180320
  Receipt Date: 20180320
  Transmission Date: 20180509
  Serious: Yes (Hospitalization)
  Sender: FDA-Public Use
  Company Number: FR-009507513-1803FRA005992

PATIENT
  Age: 3 Year
  Sex: Female

DRUGS (5)
  1. SINEMET [Suspect]
     Active Substance: CARBIDOPA\LEVODOPA
     Dosage: 100 MG, UNK
     Route: 065
  2. SINEMET [Suspect]
     Active Substance: CARBIDOPA\LEVODOPA
     Dosage: 50 MG, QID
     Route: 065
  3. KUVAN [Suspect]
     Active Substance: SAPROPTERIN DIHYDROCHLORIDE
     Indication: PRODUCT USED FOR UNKNOWN INDICATION
     Dosage: 100 MG, BID
     Route: 065
  4. LEDERFOLIN (LEUCOVORIN CALCIUM) [Concomitant]
     Active Substance: LEUCOVORIN CALCIUM
     Indication: TETRAHYDROBIOPTERIN DEFICIENCY
     Dosage: UNK
  5. LEVOTONINE [Concomitant]
     Active Substance: OXITRIPTAN
     Indication: TETRAHYDROBIOPTERIN DEFICIENCY
     Dosage: UNK

REACTIONS (6)
  - Hypertonia [Recovered/Resolved]
  - Salivary hypersecretion [Recovered/Resolved]
  - Trismus [Recovered/Resolved]
  - Parkinsonism [Unknown]
  - Off label use [Unknown]
  - Somnolence [Recovered/Resolved]

NARRATIVE: CASE EVENT DATE: 20161128
